FAERS Safety Report 7659144-3 (Version None)
Quarter: 2011Q3

REPORT INFORMATION
  Report Type: 
  Country: None (occurrence: None)
  Receive Date: 20110805
  Receipt Date: 20110729
  Transmission Date: 20111222
  Serious: Yes (Other)
  Sender: FDA-Public Use
  Company Number: US-GLAXOSMITHKLINE-A0939603A

PATIENT
  Age: 92 Year
  Sex: Female

DRUGS (1)
  1. COREG CR [Suspect]
     Dosage: 20MG UNKNOWN
     Route: 065
     Dates: start: 20020501

REACTIONS (1)
  - PNEUMONIA [None]
